FAERS Safety Report 23682466 (Version 2)
Quarter: 2024Q2

REPORT INFORMATION
  Report Type: Spontaneous
  Country: NL (occurrence: NL)
  Receive Date: 20240328
  Receipt Date: 20240412
  Transmission Date: 20240716
  Serious: Yes (Hospitalization, Other)
  Sender: FDA-Public Use
  Company Number: NL-Nova Laboratories Limited-2154967

PATIENT
  Age: 12 Month
  Sex: Female
  Weight: 10.60 kg

DRUGS (13)
  1. PURIXAN [Suspect]
     Active Substance: MERCAPTOPURINE
  2. DABRAFENIB [Suspect]
     Active Substance: DABRAFENIB
  3. SOFRADEX [DEXAMETHASONE;FRAMYCETIN SULFATE;GRAMICIDIN] (DEXAMETHASONE, [Concomitant]
     Dates: start: 20201103
  4. DABRAFENIB [Suspect]
     Active Substance: DABRAFENIB
     Route: 048
     Dates: start: 20201209
  5. DABRAFENIB [Suspect]
     Active Substance: DABRAFENIB
     Route: 048
     Dates: start: 20201120, end: 20201208
  6. AMPHOTERICIN B [Concomitant]
     Active Substance: AMPHOTERICIN B
     Dates: start: 20201102
  7. ISAVUCONAZOLE [Concomitant]
     Active Substance: ISAVUCONAZOLE
     Dates: start: 20201121
  8. HYDROCORTISONE [Concomitant]
     Active Substance: HYDROCORTISONE
  9. SOFRADEX [DEXAMETHASONE;FRAMYCETIN SULFATE;GRAMICID [Concomitant]
  10. POTASSIUM CHLORIDE [Concomitant]
     Active Substance: POTASSIUM CHLORIDE
     Dates: start: 20201123
  11. TRAMETINIB [Suspect]
     Active Substance: TRAMETINIB
     Route: 048
     Dates: start: 20201120, end: 20201208
  12. PREDNISONE [Suspect]
     Active Substance: PREDNISONE
  13. VINBLASTINE [Suspect]
     Active Substance: VINBLASTINE

REACTIONS (4)
  - Gastrointestinal haemorrhage [Unknown]
  - Haemoglobin decreased [Unknown]
  - Melaena [Recovered/Resolved]
  - Off label use [Unknown]

NARRATIVE: CASE EVENT DATE: 20201207
